FAERS Safety Report 9380339 (Version 2)
Quarter: 2013Q3

REPORT INFORMATION
  Report Type: Spontaneous
  Country: US (occurrence: US)
  Receive Date: 20130702
  Receipt Date: 20130806
  Transmission Date: 20140515
  Serious: Yes (Hospitalization)
  Sender: FDA-Public Use
  Company Number: US-GLAXOSMITHKLINE-A1028828A

PATIENT
  Age: 63 Year
  Sex: Female

DRUGS (13)
  1. VENTOLIN [Suspect]
     Indication: CHRONIC OBSTRUCTIVE PULMONARY DISEASE
     Dosage: 2PUFF FOUR TIMES PER DAY
     Route: 055
  2. ADVAIR [Concomitant]
  3. SPIRIVA [Concomitant]
  4. OXYCONTIN [Concomitant]
  5. OXYCODONE [Concomitant]
  6. NEXIUM [Concomitant]
  7. KLONOPIN [Concomitant]
  8. FLEXERIL [Concomitant]
  9. ROZEREM [Concomitant]
  10. ZANTAC [Concomitant]
  11. MOTRIN [Concomitant]
  12. COLACE [Concomitant]
  13. LOPERAMIDE [Concomitant]

REACTIONS (5)
  - Dyspnoea [Not Recovered/Not Resolved]
  - Blood pressure increased [Not Recovered/Not Resolved]
  - Malaise [Unknown]
  - Fatigue [Unknown]
  - Product quality issue [Unknown]
